FAERS Safety Report 10975288 (Version 6)
Quarter: 2024Q3

REPORT INFORMATION
  Report Type: Spontaneous
  Country: CZ (occurrence: CZ)
  Receive Date: 20150401
  Receipt Date: 20240805
  Transmission Date: 20241017
  Serious: Yes (Hospitalization, Other)
  Sender: JOHNSON AND JOHNSON
  Company Number: CZ-CELLTRION HEALTHCARE HUNGARY KFT-2021CZ003457

PATIENT
  Age: 8 Year
  Sex: Male
  Weight: 18 kg

DRUGS (6)
  1. REMICADE [Suspect]
     Active Substance: INFLIXIMAB
     Indication: Colitis ulcerative
     Dates: start: 20101223, end: 20110717
  2. REMICADE [Suspect]
     Active Substance: INFLIXIMAB
     Indication: Coeliac disease
     Dosage: EVERY 8 WEEKS THEN LATER EVERY 6 WEEKS
  3. REMICADE [Suspect]
     Active Substance: INFLIXIMAB
     Dosage: 15 MG/KG, SIXTH DOSE
  4. AZATHIOPRINE [Suspect]
     Active Substance: AZATHIOPRINE
     Indication: Colitis ulcerative
     Route: 048
     Dates: start: 20110614, end: 20110727
  5. AZATHIOPRINE [Suspect]
     Active Substance: AZATHIOPRINE
     Indication: Coeliac disease
     Route: 065
  6. AZATHIOPRINE [Suspect]
     Active Substance: AZATHIOPRINE
     Route: 065

REACTIONS (5)
  - Posterior reversible encephalopathy syndrome [Recovered/Resolved]
  - Colitis ulcerative [Recovered/Resolved]
  - Hypertension [Unknown]
  - Off label use [Unknown]
  - Product use issue [Unknown]

NARRATIVE: CASE EVENT DATE: 20110727
